FAERS Safety Report 4524227-3 (Version None)
Quarter: 2004Q4

REPORT INFORMATION
  Report Type: 
  Country: None (occurrence: None)
  Receive Date: 20041209
  Receipt Date: 20041125
  Transmission Date: 20050328
  Serious: Yes (Hospitalization)
  Sender: FDA-Public Use
  Company Number: 2004VX000923

PATIENT
  Age: 91 Year
  Sex: Female

DRUGS (4)
  1. MESTINON [Suspect]
     Indication: MYASTHENIA GRAVIS
     Dosage: ORAL
     Route: 048
     Dates: start: 20040501
  2. PREDNISOLONE [Suspect]
     Indication: MYASTHENIA GRAVIS
     Dates: start: 20040501, end: 20040601
  3. EGAZIL DURETTER [Concomitant]
  4. AZATHIOPRINE ^NM PHARMA^ [Concomitant]

REACTIONS (6)
  - CONFUSIONAL STATE [None]
  - DELUSION [None]
  - EPILEPSY [None]
  - MANIA [None]
  - MEDICATION ERROR [None]
  - REFUSAL OF TREATMENT BY PATIENT [None]
